FAERS Safety Report 4694890-5 (Version None)
Quarter: 2005Q2

REPORT INFORMATION
  Report Type: 
  Country: None (occurrence: None)
  Receive Date: 20050617
  Receipt Date: 20050607
  Transmission Date: 20051028
  Serious: Yes (Other)
  Sender: FDA-Public Use
  Company Number: 2005087290

PATIENT
  Age: 42 Year
  Sex: Male
  Weight: 90.7194 kg

DRUGS (1)
  1. BEXTRA [Suspect]
     Indication: PAIN
     Dosage: ORAL
     Route: 048
     Dates: start: 20020801

REACTIONS (11)
  - ABDOMINAL PAIN UPPER [None]
  - BACK INJURY [None]
  - FALL [None]
  - HEADACHE [None]
  - HYPERHIDROSIS [None]
  - HYPOAESTHESIA [None]
  - JOINT SWELLING [None]
  - KNEE OPERATION [None]
  - MALAISE [None]
  - RECTAL HAEMORRHAGE [None]
  - VERTIGO [None]
